FAERS Safety Report 6855198-2 (Version None)
Quarter: 2010Q3

REPORT INFORMATION
  Report Type: 
  Country: None (occurrence: None)
  Receive Date: 20100718
  Receipt Date: 20100708
  Transmission Date: 20110219
  Serious: Yes (Hospitalization)
  Sender: FDA-Public Use
  Company Number: US-MYLANLABS-2010S1012231

PATIENT
  Age: 50 Year
  Sex: Male

DRUGS (3)
  1. VALACYCLOVIR HYDROCHLORIDE TABLETS [Suspect]
     Indication: ANTIVIRAL PROPHYLAXIS
     Route: 048
     Dates: start: 20100401
  2. VICODIN [Concomitant]
     Indication: PAIN
     Dosage: 4 TO 6 HOURS AS NEEDED
     Dates: start: 20100624
  3. RITUXIMAB [Concomitant]
     Indication: NEOPLASM MALIGNANT
     Dosage: EVERY THURSDAY ANTIBODIES FOR CANCER
     Dates: start: 20100501

REACTIONS (2)
  - NEPHROLITHIASIS [None]
  - RENAL PAIN [None]
